FAERS Safety Report 23921189 (Version 1)
Quarter: 2024Q2

REPORT INFORMATION
  Report Type: Spontaneous
  Country: US (occurrence: US)
  Receive Date: 20240530
  Receipt Date: 20240530
  Transmission Date: 20240716
  Serious: Yes (Life-Threatening, Hospitalization)
  Sender: FDA-Public Use
  Company Number: US-JNJFOC-20240570569

PATIENT
  Age: 65 Year
  Sex: Female

DRUGS (1)
  1. ACETAMINOPHEN [Suspect]
     Active Substance: ACETAMINOPHEN
     Indication: Product used for unknown indication
     Dosage: 2-4 500 MG TABLETS FOR THE PAST 2 YEARS, WITH INCREASED USE OVER THE PRECEDING WEEKS
     Route: 065

REACTIONS (4)
  - Acute kidney injury [Recovered/Resolved]
  - Renal tubular injury [Recovered/Resolved]
  - Acute hepatic failure [Recovered/Resolved]
  - Toxicity to various agents [Unknown]
